FAERS Safety Report 11551621 (Version 1)
Quarter: 2015Q3

REPORT INFORMATION
  Report Type: Spontaneous
  Country: US (occurrence: US)
  Receive Date: 20150903
  Receipt Date: 20150903
  Transmission Date: 20151125
  Serious: No
  Sender: FDA-Public Use
  Company Number: US-ELI_LILLY_AND_COMPANY-US201208003351

PATIENT
  Age: 71 Year
  Sex: Female

DRUGS (3)
  1. HUMALOG [Suspect]
     Active Substance: INSULIN LISPRO
     Dosage: 20 U, TID
  2. LANTUS [Concomitant]
     Active Substance: INSULIN GLARGINE
  3. HUMALOG [Suspect]
     Active Substance: INSULIN LISPRO
     Indication: TYPE 1 DIABETES MELLITUS
     Dosage: 20 U, TID

REACTIONS (5)
  - Malaise [Unknown]
  - Visual impairment [Not Recovered/Not Resolved]
  - Injury associated with device [Unknown]
  - Drug dose omission [Unknown]
  - Hypoacusis [Not Recovered/Not Resolved]

NARRATIVE: CASE EVENT DATE: 20120807
